FAERS Safety Report 6286942-3 (Version None)
Quarter: 2009Q3

REPORT INFORMATION
  Report Type: 
  Country: None (occurrence: None)
  Receive Date: 20090724
  Receipt Date: 20090713
  Transmission Date: 20100115
  Serious: Yes (Hospitalization, Disabling)
  Sender: FDA-Public Use
  Company Number: ADE2009-0736

PATIENT
  Age: 50 Year
  Sex: Female
  Weight: 50 kg

DRUGS (2)
  1. PAROXETINE [Suspect]
     Indication: DEPRESSION
     Dosage: 60MG- ORAL
     Route: 048
     Dates: start: 20080801, end: 20090501
  2. DEPAKOTE [Suspect]
     Indication: MOOD SWINGS
     Dosage: 750MG - BID
     Dates: start: 20080801, end: 20090501

REACTIONS (4)
  - ABASIA [None]
  - ASTHENIA [None]
  - HYPONATRAEMIA [None]
  - TREMOR [None]
